FAERS Safety Report 25065948 (Version 1)
Quarter: 2025Q1

REPORT INFORMATION
  Report Type: Report from Study
  Country: IT (occurrence: IT)
  Receive Date: 20250312
  Receipt Date: 20250312
  Transmission Date: 20250409
  Serious: Yes (Hospitalization)
  Sender: ABBVIE
  Company Number: IT-ABBVIE-6097323

PATIENT
  Age: 70 Year
  Sex: Female

DRUGS (4)
  1. SKYRIZI [Suspect]
     Active Substance: RISANKIZUMAB-RZAA
     Indication: Crohn^s disease
     Dosage: 360 MILLIGRAM
     Route: 058
     Dates: start: 20240628, end: 20250110
  2. BISOPROLOL [Concomitant]
     Active Substance: BISOPROLOL
     Indication: Cardiac disorder
  3. MAGNESIUM [Concomitant]
     Active Substance: MAGNESIUM
     Indication: Product used for unknown indication
  4. Sodioral con inulina [Concomitant]
     Indication: Product used for unknown indication

REACTIONS (5)
  - Gastrointestinal disorder [Not Recovered/Not Resolved]
  - Lipase increased [Not Recovered/Not Resolved]
  - Influenza [Not Recovered/Not Resolved]
  - Amylase increased [Not Recovered/Not Resolved]
  - Productive cough [Not Recovered/Not Resolved]

NARRATIVE: CASE EVENT DATE: 20250110
